FAERS Safety Report 12858001 (Version 1)
Quarter: 2016Q4

REPORT INFORMATION
  Report Type: Spontaneous
  Country: US (occurrence: US)
  Receive Date: 20161018
  Receipt Date: 20161018
  Transmission Date: 20170207
  Serious: No
  Sender: FDA-Public Use
  Company Number: US-SA-2015SA221915

PATIENT
  Age: 72 Year
  Sex: Female

DRUGS (1)
  1. CAMPATH [Suspect]
     Active Substance: ALEMTUZUMAB
     Indication: LEUKAEMIA
     Route: 065
     Dates: start: 20151218, end: 20151218

REACTIONS (2)
  - Blister [Unknown]
  - Skin disorder [Unknown]

NARRATIVE: CASE EVENT DATE: 20151218
